FAERS Safety Report 12339025 (Version 1)
Quarter: 2016Q2

REPORT INFORMATION
  Report Type: Not Available
  Country: TW (occurrence: TW)
  Receive Date: 20160505
  Receipt Date: 20160505
  Transmission Date: 20160815
  Serious: Yes (Hospitalization)
  Sender: FDA-Public Use
  Company Number: TW-ANIPHARMA-2016-TW-000002

PATIENT
  Age: 17 Year
  Sex: Female

DRUGS (3)
  1. LITHIUM CARBONATE (NON-SPECIFIC) [Suspect]
     Active Substance: LITHIUM
     Dosage: 900 MG DAILY
  2. PALIPERIDONE-ER [Suspect]
     Active Substance: PALIPERIDONE
     Dosage: 12 MG DAILY
     Route: 048
  3. ESTAZOLAM. [Concomitant]
     Active Substance: ESTAZOLAM
     Dosage: 2 MG EVERY NIGHT

REACTIONS (3)
  - Serotonin syndrome [Unknown]
  - Treatment noncompliance [None]
  - Drug interaction [Unknown]
